FAERS Safety Report 18090838 (Version 1)
Quarter: 2020Q3

REPORT INFORMATION
  Report Type: Spontaneous
  Country: US (occurrence: US)
  Receive Date: 20200729
  Receipt Date: 20200729
  Transmission Date: 20201103
  Serious: Yes (Hospitalization)
  Sender: FDA-Public Use
  Company Number: None

PATIENT
  Age: 72 Year
  Sex: Male
  Weight: 99.79 kg

DRUGS (3)
  1. CHERRY PILLS [Concomitant]
  2. VITAMINS NOS [Concomitant]
     Active Substance: VITAMINS
  3. BACTRIM [Suspect]
     Active Substance: SULFAMETHOXAZOLE\TRIMETHOPRIM
     Indication: ANTIBIOTIC PROPHYLAXIS
     Dosage: ?          QUANTITY:1 DF DOSAGE FORM;?
     Route: 048
     Dates: start: 20200610, end: 20200617

REACTIONS (5)
  - Stomatitis [None]
  - Faeces discoloured [None]
  - Gastric haemorrhage [None]
  - Platelet count decreased [None]
  - Mouth haemorrhage [None]

NARRATIVE: CASE EVENT DATE: 20200617
